FAERS Safety Report 17611275 (Version 6)
Quarter: 2020Q2

REPORT INFORMATION
  Report Type: Report from Study
  Country: None (occurrence: SE)
  Receive Date: 20200401
  Receipt Date: 20200621
  Transmission Date: 20200713
  Serious: Yes (Hospitalization)
  Sender: FDA-Public Use
  Company Number: SE-ABBVIE-20K-150-3344910-00

PATIENT
  Age: 80 Year
  Sex: Male
  Weight: 54 kg

DRUGS (5)
  1. DUODOPA [Suspect]
     Active Substance: CARBIDOPA\LEVODOPA
     Dosage: CONTINUOUS DOSE INCREASED TO 4.3 ML/H?EXTRA DOSE DECREASED FROM 2 ML TO 1.5 ML
     Route: 050
     Dates: start: 20200508, end: 202005
  2. DUODOPA [Suspect]
     Active Substance: CARBIDOPA\LEVODOPA
     Route: 050
     Dates: start: 20131107
  3. DUODOPA [Suspect]
     Active Substance: CARBIDOPA\LEVODOPA
     Dosage: CD DECREASED FROM 4.3ML/H TO 4.2ML/H AND ED  FROM 1.5ML TO 1ML.
     Route: 050
     Dates: start: 20200511
  4. DUODOPA [Suspect]
     Active Substance: CARBIDOPA\LEVODOPA
     Dosage: CONTINUOUS DOSE DECREASED FROM 4.4 ML/H TO 4.2 ML/H
     Route: 050
     Dates: start: 20200401, end: 2020
  5. DUODOPA [Suspect]
     Active Substance: CARBIDOPA\LEVODOPA
     Indication: PARKINSON^S DISEASE
     Route: 050
     Dates: start: 20130924, end: 2013

REACTIONS (11)
  - Unresponsive to stimuli [Unknown]
  - Parkinson^s disease [Not Recovered/Not Resolved]
  - Hallucination, visual [Not Recovered/Not Resolved]
  - Device occlusion [Not Recovered/Not Resolved]
  - Device difficult to use [Not Recovered/Not Resolved]
  - Temperature intolerance [Not Recovered/Not Resolved]
  - Syncope [Unknown]
  - Mental disorder [Unknown]
  - Stoma site discharge [Not Recovered/Not Resolved]
  - Feeding disorder [Unknown]
  - Hyperkinesia [Not Recovered/Not Resolved]

NARRATIVE: CASE EVENT DATE: 202002
